FAERS Safety Report 6438409-7 (Version None)
Quarter: 2009Q4

REPORT INFORMATION
  Report Type: 
  Country: None (occurrence: None)
  Receive Date: 20091109
  Receipt Date: 20091102
  Transmission Date: 20100525
  Serious: Yes (Hospitalization, Other)
  Sender: FDA-Public Use
  Company Number: 2009SP020069

PATIENT
  Age: 67 Year
  Weight: 40 kg

DRUGS (15)
  1. TEMODAL [Suspect]
     Indication: ANAPLASTIC ASTROCYTOMA
     Dosage: 75 MG/M2;QD;PO
     Route: 048
     Dates: start: 20080904, end: 20081020
  2. BACTRIM [Suspect]
     Indication: ANTIFUNGAL PROPHYLAXIS
     Dosage: PO
     Route: 048
     Dates: start: 20080904, end: 20080922
  3. ZONISAMIDE [Suspect]
     Dosage: PO
     Route: 048
     Dates: start: 20080821, end: 20080922
  4. FAMOTIDINE [Suspect]
     Dosage: PO
     Route: 048
     Dates: start: 20080822, end: 20080922
  5. DEPAKENE [Suspect]
     Dosage: PO
     Route: 048
     Dates: end: 20080908
  6. DEPAKENE [Suspect]
     Dosage: PO
     Route: 048
     Dates: start: 20080903, end: 20080922
  7. BAKTAR (CON.) [Concomitant]
  8. MAGMITT (CON.) [Concomitant]
  9. MEVALOTIN (CON.) [Concomitant]
  10. ZOFRAN (CON.) [Concomitant]
  11. TEGRETOL (CON.) [Concomitant]
  12. MUCOSTA (CON.) [Concomitant]
  13. PURSENNID (CON.) [Concomitant]
  14. PHENOBAL (CON.) [Concomitant]
  15. NAUZELIN (CON.) [Concomitant]

REACTIONS (10)
  - BRAIN NEOPLASM [None]
  - DECREASED APPETITE [None]
  - HEPATIC FUNCTION ABNORMAL [None]
  - HYPONATRAEMIA [None]
  - MALIGNANT NEOPLASM PROGRESSION [None]
  - NAUSEA [None]
  - NUTRITIONAL CONDITION ABNORMAL [None]
  - PLATELET COUNT DECREASED [None]
  - PROCEDURAL VOMITING [None]
  - VOMITING [None]
